FAERS Safety Report 5195855-X (Version None)
Quarter: 2007Q1

REPORT INFORMATION
  Report Type: 
  Country: None (occurrence: None)
  Receive Date: 20070102
  Receipt Date: 20070102
  Transmission Date: 20070707
  Serious: Yes (Death)
  Sender: FDA-Public Use
  Company Number: US-GLAXOSMITHKLINE-A0521206A

PATIENT
  Age: 54 Year
  Sex: Male
  Weight: 60.5 kg

DRUGS (4)
  1. PAXIL CR [Suspect]
     Indication: DEPRESSION
     Dosage: 25MG PER DAY
     Route: 048
     Dates: start: 20030617, end: 20030708
  2. ADVAIR DISKUS 100/50 [Concomitant]
  3. EXCEDRIN (MIGRAINE) [Concomitant]
  4. IBUPROFEN [Concomitant]

REACTIONS (9)
  - ADVERSE EVENT [None]
  - AGGRESSION [None]
  - AKATHISIA [None]
  - COMPLETED SUICIDE [None]
  - DISORIENTATION [None]
  - FEELING JITTERY [None]
  - INSOMNIA [None]
  - PAIN [None]
  - PERSONALITY CHANGE [None]
